FAERS Safety Report 6648155-2 (Version None)
Quarter: 2010Q1

REPORT INFORMATION
  Report Type: 
  Country: None (occurrence: None)
  Receive Date: 20100324
  Receipt Date: 20100311
  Transmission Date: 20100710
  Serious: Yes (Hospitalization, Other)
  Sender: FDA-Public Use
  Company Number: DE-ELI_LILLY_AND_COMPANY-DE201001004574

PATIENT
  Age: 12 Year
  Sex: Male

DRUGS (4)
  1. STRATTERA [Suspect]
     Indication: ATTENTION DEFICIT/HYPERACTIVITY DISORDER
     Dosage: 40 MG, UNKNOWN
     Route: 048
     Dates: start: 20081007, end: 20100308
  2. RITALIN [Concomitant]
     Dosage: 10 MG, UNKNOWN
     Route: 065
  3. SINGULAIR [Concomitant]
     Dosage: UNK, UNKNOWN
     Route: 065
  4. ANTI-ASTHMATICS [Concomitant]
     Dosage: UNK, UNKNOWN
     Route: 065

REACTIONS (5)
  - EDUCATIONAL PROBLEM [None]
  - HYPOTENSION [None]
  - MOOD ALTERED [None]
  - PALLOR [None]
  - VOMITING [None]
